FAERS Safety Report 5002509-9 (Version None)
Quarter: 2006Q2

REPORT INFORMATION
  Report Type: 
  Country: None (occurrence: None)
  Receive Date: 20060515
  Receipt Date: 20050614
  Transmission Date: 20061013
  Serious: Yes (Hospitalization, Disabling)
  Sender: FDA-Public Use
  Company Number: US-MERCK-0506USA02179

PATIENT
  Age: 54 Year
  Sex: Male
  Weight: 76 kg

DRUGS (2)
  1. VIOXX [Suspect]
     Indication: ARTHRALGIA
     Route: 048
     Dates: start: 19990501, end: 20041001
  2. TYLENOL (CAPLET) [Concomitant]
     Route: 065

REACTIONS (4)
  - ACUTE MYOCARDIAL INFARCTION [None]
  - ANGINA UNSTABLE [None]
  - DEPRESSION [None]
  - MUSCLE SPASMS [None]
